FAERS Safety Report 25817451 (Version 1)
Quarter: 2025Q3

REPORT INFORMATION
  Report Type: Spontaneous
  Country: MX (occurrence: MX)
  Receive Date: 20250918
  Receipt Date: 20250918
  Transmission Date: 20251020
  Serious: Yes (Other)
  Sender: ALEXION PHARMACEUTICALS
  Company Number: MX-ASTRAZENECA-202509GLO010672MX

PATIENT
  Age: 48 Year
  Sex: Female

DRUGS (3)
  1. OSIMERTINIB [Suspect]
     Active Substance: OSIMERTINIB
     Indication: EGFR gene mutation
     Dosage: 80 MILLIGRAM, QD
     Route: 065
  2. OSIMERTINIB [Suspect]
     Active Substance: OSIMERTINIB
     Indication: Non-small cell lung cancer
  3. TEPOTINIB [Suspect]
     Active Substance: TEPOTINIB
     Indication: Non-small cell lung cancer
     Dosage: 500 MILLIGRAM, QD
     Route: 065

REACTIONS (5)
  - Malignant neoplasm progression [Unknown]
  - Drug resistance mutation [Unknown]
  - Acquired gene mutation [Unknown]
  - Oedema peripheral [Unknown]
  - Gastrointestinal toxicity [Unknown]
